FAERS Safety Report 25346657 (Version 1)
Quarter: 2025Q2

REPORT INFORMATION
  Report Type: Spontaneous
  Country: CA (occurrence: CA)
  Receive Date: 20250522
  Receipt Date: 20250522
  Transmission Date: 20250717
  Serious: Yes (Hospitalization)
  Sender: PFIZER
  Company Number: CA-PFIZER INC-202500104817

PATIENT
  Age: 71 Year
  Sex: Female

DRUGS (1)
  1. FRAGMIN [Suspect]
     Active Substance: DALTEPARIN SODIUM
     Indication: Pulmonary embolism
     Dosage: 15000.0 IU, 1X/DAY
     Route: 058

REACTIONS (9)
  - Abdominal pain upper [Not Recovered/Not Resolved]
  - Acute kidney injury [Not Recovered/Not Resolved]
  - Aortic thrombosis [Not Recovered/Not Resolved]
  - Heparin-induced thrombocytopenia [Not Recovered/Not Resolved]
  - Mesenteric artery thrombosis [Not Recovered/Not Resolved]
  - Mesenteric vein thrombosis [Not Recovered/Not Resolved]
  - Platelet count decreased [Not Recovered/Not Resolved]
  - Splenic infarction [Not Recovered/Not Resolved]
  - Thrombocytopenia [Not Recovered/Not Resolved]
